FAERS Safety Report 13268014 (Version 1)
Quarter: 2017Q1

REPORT INFORMATION
  Report Type: Spontaneous
  Country: US (occurrence: US)
  Receive Date: 20170224
  Receipt Date: 20170224
  Transmission Date: 20170428
  Serious: Yes (Other)
  Sender: FDA-Public Use
  Company Number: None

PATIENT

DRUGS (1)
  1. MEDROXYPROGESTERONE [Suspect]
     Active Substance: MEDROXYPROGESTERONE
     Indication: CONTRACEPTION
     Dosage: OTHER FREQUENCY:EVERY 3 MONTHS;?
     Route: 030

REACTIONS (2)
  - Product packaging issue [None]
  - Incorrect product storage [None]

NARRATIVE: CASE EVENT DATE: 20170220
